FAERS Safety Report 8371857-7 (Version None)
Quarter: 2012Q2

REPORT INFORMATION
  Report Type: 
  Country: None (occurrence: None)
  Receive Date: 20120518
  Receipt Date: 20120510
  Transmission Date: 20120825
  Serious: Yes (Hospitalization)
  Sender: FDA-Public Use
  Company Number: JP-ROCHE-1069397

PATIENT
  Sex: Female
  Weight: 38 kg

DRUGS (2)
  1. ACTEMRA [Suspect]
     Indication: RHEUMATOID ARTHRITIS
     Route: 058
     Dates: start: 20101203, end: 20120502
  2. ACTEMRA [Suspect]
     Route: 058
     Dates: start: 20100618

REACTIONS (1)
  - INTERSTITIAL LUNG DISEASE [None]
